FAERS Safety Report 12216859 (Version 4)
Quarter: 2016Q2

REPORT INFORMATION
  Report Type: Spontaneous
  Country: IT (occurrence: IT)
  Receive Date: 20160329
  Receipt Date: 20160630
  Transmission Date: 20160815
  Serious: Yes (Other)
  Sender: FDA-Public Use
  Company Number: IT-ROCHE-1732230

PATIENT
  Age: 33 Year
  Sex: Female
  Weight: 168 kg

DRUGS (8)
  1. PERJETA [Suspect]
     Active Substance: PERTUZUMAB
     Indication: BREAST CANCER METASTATIC
     Route: 065
     Dates: start: 201412, end: 20160209
  2. HERCEPTIN [Interacting]
     Active Substance: TRASTUZUMAB
     Indication: BREAST CANCER METASTATIC
     Route: 065
  3. HERCEPTIN [Interacting]
     Active Substance: TRASTUZUMAB
     Route: 065
     Dates: start: 201412, end: 20160209
  4. DOCETAXEL. [Concomitant]
     Active Substance: DOCETAXEL
     Route: 065
     Dates: start: 201412, end: 201505
  5. HERCEPTIN [Interacting]
     Active Substance: TRASTUZUMAB
     Indication: BREAST CANCER METASTATIC
     Dosage: 150 MG VIA FOR INTRAVENOUS USE
     Route: 041
     Dates: end: 20160330
  6. TAXOL [Concomitant]
     Active Substance: PACLITAXEL
     Route: 065
     Dates: start: 20151020
  7. PERJETA [Interacting]
     Active Substance: PERTUZUMAB
     Dosage: INTRAVENOUS SUE 30 MG/ML VIAL (GLASS)
     Route: 042
     Dates: end: 20160330
  8. HERCEPTIN [Interacting]
     Active Substance: TRASTUZUMAB
     Route: 065
     Dates: start: 20130725, end: 201405

REACTIONS (2)
  - Ventricular hypokinesia [Recovered/Resolved]
  - Drug interaction [Unknown]

NARRATIVE: CASE EVENT DATE: 20160223
